FAERS Safety Report 21622589 (Version 1)
Quarter: 2022Q4

REPORT INFORMATION
  Report Type: Spontaneous
  Country: US (occurrence: US)
  Receive Date: 20221121
  Receipt Date: 20221121
  Transmission Date: 20230112
  Serious: No
  Sender: FDA-Public Use
  Company Number: US-PFIZER INC-PV202200106515

PATIENT
  Age: 72 Year
  Sex: Female
  Weight: 52 kg

DRUGS (5)
  1. PAXLOVID [Suspect]
     Active Substance: NIRMATRELVIR\RITONAVIR
     Indication: COVID-19 treatment
     Dosage: UNK
     Dates: start: 20221028, end: 20221111
  2. REMDESIVIR [Concomitant]
     Active Substance: REMDESIVIR
     Route: 042
  3. POSACONAZOLE [Concomitant]
     Active Substance: POSACONAZOLE
     Indication: Fungal infection
     Dosage: UNK
  4. METOPROLOL [Concomitant]
     Active Substance: METOPROLOL
     Dosage: UNK
  5. SULFAMETHOXAZOLE\TRIMETHOPRIM [Concomitant]
     Active Substance: SULFAMETHOXAZOLE\TRIMETHOPRIM
     Indication: Pneumocystis jirovecii pneumonia
     Dosage: UNK

REACTIONS (1)
  - Inappropriate schedule of product administration [Unknown]
